FAERS Safety Report 16990441 (Version 1)
Quarter: 2019Q4

REPORT INFORMATION
  Report Type: Spontaneous
  Country: US (occurrence: US)
  Receive Date: 20191103
  Receipt Date: 20191103
  Transmission Date: 20200122
  Serious: No
  Sender: FDA-Public Use
  Company Number: None

PATIENT
  Age: 32 Year
  Sex: Female
  Weight: 66.6 kg

DRUGS (1)
  1. BOTOX [Suspect]
     Active Substance: ONABOTULINUMTOXINA

REACTIONS (2)
  - Eyelid ptosis [None]
  - Alopecia [None]

NARRATIVE: CASE EVENT DATE: 20191002
